FAERS Safety Report 13388637 (Version 3)
Quarter: 2017Q2

REPORT INFORMATION
  Report Type: Spontaneous
  Country: US (occurrence: US)
  Receive Date: 20170330
  Receipt Date: 20170413
  Transmission Date: 20170830
  Serious: Yes (Death, Hospitalization, Other)
  Sender: FDA-Public Use
  Company Number: US-BAXTER-2017BAX012043

PATIENT
  Age: 86 Year
  Sex: Male

DRUGS (2)
  1. DIANEAL LOW CALCIUM PERITONEAL DIALYSIS SOLUTION WITH DEXTROSE [Suspect]
     Active Substance: CALCIUM CHLORIDE\DEXTROSE\MAGNESIUM CHLORIDE\SODIUM CHLORIDE\SODIUM LACTATE
     Indication: PERITONEAL DIALYSIS
     Route: 033
     Dates: start: 20140717, end: 20170326
  2. DIANEAL LOW CALCIUM PERITONEAL DIALYSIS SOLUTION WITH DEXTROSE [Suspect]
     Active Substance: CALCIUM CHLORIDE\DEXTROSE\MAGNESIUM CHLORIDE\SODIUM CHLORIDE\SODIUM LACTATE
     Indication: PERITONEAL DIALYSIS
     Route: 033
     Dates: start: 20140717, end: 20170326

REACTIONS (9)
  - Seizure [Unknown]
  - Limb injury [Unknown]
  - Fall [Recovered/Resolved]
  - Therapy cessation [Fatal]
  - Failure to thrive [Not Recovered/Not Resolved]
  - Hypertension [Unknown]
  - Gastrointestinal haemorrhage [Not Recovered/Not Resolved]
  - Pneumonia [Unknown]
  - Impaired self-care [Unknown]

NARRATIVE: CASE EVENT DATE: 201703
